FAERS Safety Report 5024705-7 (Version None)
Quarter: 2006Q2

REPORT INFORMATION
  Report Type: 
  Country: None (occurrence: None)
  Receive Date: 20060613
  Receipt Date: 20050623
  Transmission Date: 20061013
  Serious: Yes (Hospitalization, Disabling, Other)
  Sender: FDA-Public Use
  Company Number: 200511852JP

PATIENT
  Age: 29 Year
  Sex: Female
  Weight: 60 kg

DRUGS (5)
  1. HUMALOG [Suspect]
     Indication: DIABETES MELLITUS INSULIN-DEPENDENT
     Route: 058
     Dates: start: 20050420, end: 20050816
  2. HUMALOG [Suspect]
     Route: 058
     Dates: start: 20050817, end: 20050907
  3. LANTUS [Suspect]
     Indication: DIABETES MELLITUS INSULIN-DEPENDENT
     Route: 058
     Dates: start: 20040101, end: 20050816
  4. LANTUS [Suspect]
     Route: 058
     Dates: start: 20050817
  5. OPTIPEN (INSULIN PUMP) [Suspect]

REACTIONS (16)
  - BACTERIAL INFECTION [None]
  - BALANCE DISORDER [None]
  - BLOOD GLUCOSE DECREASED [None]
  - C-REACTIVE PROTEIN INCREASED [None]
  - CELLULITIS [None]
  - DEPRESSED LEVEL OF CONSCIOUSNESS [None]
  - ERYTHEMA [None]
  - FALL [None]
  - GAS GANGRENE [None]
  - HYPOGLYCAEMIA [None]
  - HYPOGLYCAEMIC COMA [None]
  - LOSS OF CONSCIOUSNESS [None]
  - OEDEMA PERIPHERAL [None]
  - PYREXIA [None]
  - WHITE BLOOD CELL COUNT INCREASED [None]
  - WOUND SECRETION [None]
